FAERS Safety Report 7286436-2 (Version None)
Quarter: 2011Q1

REPORT INFORMATION
  Report Type: 
  Country: None (occurrence: None)
  Receive Date: 20110131
  Receipt Date: 20110114
  Transmission Date: 20110831
  Serious: Yes (Death)
  Sender: FDA-Public Use
  Company Number: 1000018453

PATIENT
  Age: 21 Year
  Sex: Male

DRUGS (7)
  1. DIAZEPAM [Suspect]
  2. BENZODIAZEPINE (BENZODIAZEPINE DERIVATIVES) [Suspect]
  3. AMLODIPINE [Suspect]
  4. CLONAZEPAM [Suspect]
  5. ACETAMINOPHEN [Suspect]
  6. CITALOPRAM HYDROBROMIDE [Suspect]
  7. METOPROLOL SUCCINATE [Suspect]

REACTIONS (10)
  - CARDIAC ARREST [None]
  - RESPIRATORY ARREST [None]
  - COMPLETED SUICIDE [None]
  - UNRESPONSIVE TO STIMULI [None]
  - POISONING [None]
  - HEART RATE DECREASED [None]
  - ISCHAEMIC HEPATITIS [None]
  - ACUTE RESPIRATORY DISTRESS SYNDROME [None]
  - ARRHYTHMIA [None]
  - BLOOD PRESSURE DECREASED [None]
